FAERS Safety Report 21092326 (Version 2)
Quarter: 2022Q3

REPORT INFORMATION
  Report Type: Other
  Country: CA (occurrence: CA)
  Receive Date: 20220718
  Receipt Date: 20220915
  Transmission Date: 20221026
  Serious: No
  Sender: FDA-Public Use
  Company Number: CA-ROCHE-2364969

PATIENT
  Age: 32 Year
  Sex: Female

DRUGS (7)
  1. OCREVUS [Suspect]
     Active Substance: OCRELIZUMAB
     Indication: Multiple sclerosis
     Dosage: SUBSEQUENT THERAPY : 30/JUL/2019
     Route: 042
     Dates: start: 20190716, end: 20190730
  2. OCREVUS [Suspect]
     Active Substance: OCRELIZUMAB
     Indication: Relapsing-remitting multiple sclerosis
  3. TECFIDERA [Concomitant]
     Active Substance: DIMETHYL FUMARATE
  4. INTERFERON BETA-1A [Concomitant]
     Active Substance: INTERFERON BETA-1A
  5. GLATIRAMER [Concomitant]
     Active Substance: GLATIRAMER
  6. NATALIZUMAB [Concomitant]
     Active Substance: NATALIZUMAB
  7. DIMETHYL FUMARATE [Concomitant]
     Active Substance: DIMETHYL FUMARATE

REACTIONS (5)
  - Infusion related reaction [Recovered/Resolved]
  - Infusion related reaction [Recovered/Resolved]
  - COVID-19 [Unknown]
  - Throat irritation [Unknown]
  - Fatigue [Unknown]

NARRATIVE: CASE EVENT DATE: 20190716
